FAERS Safety Report 6773594-9 (Version None)
Quarter: 2010Q2

REPORT INFORMATION
  Report Type: 
  Country: None (occurrence: None)
  Receive Date: 20100614
  Receipt Date: 20100602
  Transmission Date: 20101027
  Serious: Yes (Other)
  Sender: FDA-Public Use
  Company Number: 7007077

PATIENT
  Age: 41 Year
  Sex: Female

DRUGS (4)
  1. REBIF [Suspect]
     Indication: DRUG USE FOR UNKNOWN INDICATION
     Dosage: 22 MCG, 3 IN 1 WK, SUBCUTANEOUS 44 MCG, 3 IN 1 WK, 22 MCG
     Route: 058
     Dates: start: 20100429, end: 20100501
  2. REBIF [Suspect]
     Indication: DRUG USE FOR UNKNOWN INDICATION
     Dosage: 22 MCG, 3 IN 1 WK, SUBCUTANEOUS 44 MCG, 3 IN 1 WK, 22 MCG
     Route: 058
     Dates: start: 20100527
  3. REBIF [Suspect]
     Indication: DRUG USE FOR UNKNOWN INDICATION
     Dosage: 22 MCG, 3 IN 1 WK, SUBCUTANEOUS 44 MCG, 3 IN 1 WK, 22 MCG
     Route: 058
     Dates: start: 20100601
  4. ACETAMINOPHEN [Concomitant]

REACTIONS (3)
  - FATIGUE [None]
  - MOBILITY DECREASED [None]
  - PAIN [None]
